FAERS Safety Report 7124718-5 (Version None)
Quarter: 2010Q4

REPORT INFORMATION
  Report Type: 
  Country: None (occurrence: None)
  Receive Date: 20101129
  Receipt Date: 20101118
  Transmission Date: 20110411
  Serious: Yes (Other)
  Sender: FDA-Public Use
  Company Number: GB-JNJFOC-20101106385

PATIENT
  Age: 32 Year
  Sex: Male

DRUGS (3)
  1. REMICADE [Suspect]
     Indication: PSORIASIS
     Route: 042
  2. METHOTREXATE [Concomitant]
  3. CYCLOSPORINE [Concomitant]

REACTIONS (2)
  - LYMPHADENOPATHY [None]
  - SQUAMOUS CELL CARCINOMA [None]
